FAERS Safety Report 9988842 (Version 3)
Quarter: 2014Q1

REPORT INFORMATION
  Report Type: Spontaneous
  Country: ES (occurrence: ES)
  Receive Date: 20140310
  Receipt Date: 20140328
  Transmission Date: 20141002
  Serious: Yes (Hospitalization)
  Sender: FDA-Public Use
  Company Number: ES-JNJFOC-20140302142

PATIENT
  Sex: Male
  Weight: 74 kg

DRUGS (8)
  1. ZYTIGA [Suspect]
     Indication: PROSTATE CANCER
     Route: 048
     Dates: start: 20140207, end: 20140212
  2. PREDNISONE [Concomitant]
     Indication: PRODUCT USED FOR UNKNOWN INDICATION
     Route: 065
     Dates: start: 20140207
  3. DEXAMETHASONE [Concomitant]
     Route: 065
  4. TAPENTADOL [Concomitant]
     Route: 065
  5. ABSTRAL [Concomitant]
     Dosage: 100 RESCUES
     Route: 065
  6. ACETAMINOPHEN [Concomitant]
     Dosage: 100 RESCUES
     Route: 065
  7. OMEPRAZOLE [Concomitant]
     Dosage: 100 RESCUES
     Route: 065
  8. HORMONE ANTAGONISTS AND RELATED AGENTS [Concomitant]
     Dosage: 100 RESCUES
     Route: 065

REACTIONS (3)
  - Epistaxis [Recovered/Resolved]
  - Fibrinolysis [Recovered/Resolved]
  - Hypertension [Recovered/Resolved]
